FAERS Safety Report 16074212 (Version 1)
Quarter: 2019Q1

REPORT INFORMATION
  Report Type: Spontaneous
  Country: US (occurrence: US)
  Receive Date: 20190314
  Receipt Date: 20190314
  Transmission Date: 20190418
  Serious: No
  Sender: FDA-Public Use
  Company Number: US-009507513-1902USA006138

PATIENT
  Age: 40 Year
  Sex: Male

DRUGS (4)
  1. ATORVASTATIN [Concomitant]
     Active Substance: ATORVASTATIN
  2. VITAMIN D [Concomitant]
     Active Substance: CHOLECALCIFEROL
  3. INSULIN [Concomitant]
     Active Substance: INSULIN NOS
  4. SINEMET [Suspect]
     Active Substance: CARBIDOPA\LEVODOPA
     Indication: DOPA-RESPONSIVE DYSTONIA
     Dosage: 25/100 MG TWICE DAILY
     Route: 048

REACTIONS (1)
  - Product use in unapproved indication [Unknown]
